FAERS Safety Report 9033834 (Version 1)
Quarter: 2013Q1

REPORT INFORMATION
  Report Type: Spontaneous
  Country: US (occurrence: US)
  Receive Date: 20130128
  Receipt Date: 20130128
  Transmission Date: 20140127
  Serious: Yes (Other)
  Sender: FDA-Public Use
  Company Number: US-AMGEN-USASP2012070763

PATIENT
  Age: 52 Year
  Sex: Female

DRUGS (2)
  1. ENBREL [Suspect]
     Indication: RHEUMATOID ARTHRITIS
     Dosage: 50 MG, QWK
     Dates: start: 20050501
  2. METHOTREXATE [Concomitant]
     Dosage: 20 MG, QWK
     Dates: start: 20050501

REACTIONS (1)
  - Intraductal proliferative breast lesion [Not Recovered/Not Resolved]
